FAERS Safety Report 6765771-8 (Version None)
Quarter: 2010Q2

REPORT INFORMATION
  Report Type: 
  Country: None (occurrence: None)
  Receive Date: 20100611
  Receipt Date: 20100607
  Transmission Date: 20101027
  Serious: Yes (Death, Life-Threatening, Hospitalization)
  Sender: FDA-Public Use
  Company Number: CA-ASTRAZENECA-2010SE26565

PATIENT
  Age: 71 Year
  Sex: Female
  Weight: 79.4 kg

DRUGS (3)
  1. CRESTOR [Suspect]
     Route: 048
  2. COVERSYL [Concomitant]
     Route: 048
  3. EZETROL [Concomitant]
     Route: 048

REACTIONS (19)
  - ABASIA [None]
  - AUTOIMMUNE DISORDER [None]
  - CEREBRAL HAEMORRHAGE [None]
  - CHROMATURIA [None]
  - CONDITION AGGRAVATED [None]
  - DECREASED APPETITE [None]
  - DIZZINESS [None]
  - DRUG TOXICITY [None]
  - DYSSTASIA [None]
  - ELECTROLYTE IMBALANCE [None]
  - MOVEMENT DISORDER [None]
  - MUSCLE DISORDER [None]
  - MUSCULAR WEAKNESS [None]
  - MYALGIA [None]
  - NAUSEA [None]
  - PAIN [None]
  - PAIN IN EXTREMITY [None]
  - RENAL DISORDER [None]
  - VASCULITIS NECROTISING [None]
